FAERS Safety Report 25949289 (Version 2)
Quarter: 2025Q4

REPORT INFORMATION
  Report Type: Report from Study
  Country: CA (occurrence: CA)
  Receive Date: 20251022
  Receipt Date: 20251222
  Transmission Date: 20260117
  Serious: Yes (Other)
  Sender: OTSUKA
  Company Number: CA-MMM-Otsuka-O72PBNKM

PATIENT
  Age: 38 Year
  Sex: Female

DRUGS (2)
  1. TOLVAPTAN [Suspect]
     Active Substance: TOLVAPTAN
     Indication: Congenital cystic kidney disease
     Dosage: 45 MG, QD (IN THE MORNING)
     Route: 061
     Dates: start: 20250810
  2. TOLVAPTAN [Suspect]
     Active Substance: TOLVAPTAN
     Dosage: 15 MG, QD (IN THE EVENING)
     Route: 061
     Dates: start: 20250810

REACTIONS (10)
  - Mammoplasty [Unknown]
  - Procedural headache [Not Recovered/Not Resolved]
  - Abdominal pain upper [Unknown]
  - Nausea [Unknown]
  - Fatigue [Unknown]
  - Dry mouth [Unknown]
  - Headache [Unknown]
  - Decreased appetite [Unknown]
  - Nocturia [Unknown]
  - Thirst [Unknown]

NARRATIVE: CASE EVENT DATE: 20250801
